FAERS Safety Report 4579406-6 (Version None)
Quarter: 2005Q1

REPORT INFORMATION
  Report Type: 
  Country: None (occurrence: None)
  Receive Date: 20050209
  Receipt Date: 20050121
  Transmission Date: 20050727
  Serious: Yes (Life-Threatening, Hospitalization, Other)
  Sender: FDA-Public Use
  Company Number: US_0501111451

PATIENT
  Age: 58 Year
  Sex: Female
  Weight: 101 kg

DRUGS (7)
  1. HUMULIN 70/30 [Suspect]
     Indication: DIABETES MELLITUS NON-INSULIN-DEPENDENT
     Dosage: 50 U DAY
     Dates: start: 20030101
  2. HUMULIN R [Suspect]
     Indication: DIABETES MELLITUS NON-INSULIN-DEPENDENT
     Dosage: TYPE II DIABETES MELLITUS
     Dates: start: 20030101
  3. GLUCOPHAGE [Concomitant]
  4. SYNTHROID [Concomitant]
  5. AMITRIPTYLINE [Concomitant]
  6. NEURONTIN (GABAPENTIN PFIZER) [Concomitant]
  7. GLIPIZIDE [Concomitant]

REACTIONS (6)
  - ACUTE RESPIRATORY DISTRESS SYNDROME [None]
  - BLOOD GLUCOSE INCREASED [None]
  - BREAST CANCER FEMALE [None]
  - RENAL IMPAIRMENT [None]
  - RESPIRATORY ARREST [None]
  - SYSTEMIC LUPUS ERYTHEMATOSUS [None]
